FAERS Safety Report 17063886 (Version 2)
Quarter: 2020Q1

REPORT INFORMATION
  Report Type: Report from Study
  Country: US (occurrence: US)
  Receive Date: 20191122
  Receipt Date: 20200311
  Transmission Date: 20200409
  Serious: Yes (Death)
  Sender: FDA-Public Use
  Company Number: US-ROCHE-2478060

PATIENT

DRUGS (3)
  1. PROPOFOL. [Suspect]
     Active Substance: PROPOFOL
     Indication: SEDATION
     Route: 065
  2. HEPARIN [Concomitant]
     Active Substance: HEPARIN SODIUM
     Dosage: 80 U/KG BOLUS FOLLOWED BY 18 U/KG/H TITRATED TO MAINTAIN ACTIVATED PARTIAL THROMBOPLASTIN TIME OF 82
     Route: 065
  3. ALTEPLASE. [Suspect]
     Active Substance: ALTEPLASE
     Indication: PULMONARY EMBOLISM
     Dosage: (1 IN 1 ONCE)
     Route: 065

REACTIONS (1)
  - Pulseless electrical activity [Fatal]
